FAERS Safety Report 10671595 (Version 1)
Quarter: 2014Q4

REPORT INFORMATION
  Report Type: Spontaneous
  Country: US (occurrence: None)
  Receive Date: 20141222
  Receipt Date: 20141222
  Transmission Date: 20150529
  Serious: Yes (Death)
  Sender: FDA-Public Use
  Company Number: None

PATIENT
  Age: 54 Year
  Sex: Male

DRUGS (7)
  1. GABAPENTIN. [Concomitant]
     Active Substance: GABAPENTIN
  2. ACYCLOVIR. [Concomitant]
     Active Substance: ACYCLOVIR
  3. NYSTATIN. [Concomitant]
     Active Substance: NYSTATIN
  4. LORAZEPAM. [Concomitant]
     Active Substance: LORAZEPAM
  5. PROMACTA [Suspect]
     Active Substance: ELTROMBOPAG OLAMINE
     Indication: THROMBOCYTOPENIA
     Route: 048
     Dates: start: 20141029, end: 20141102
  6. FILGRASTIM [Concomitant]
     Active Substance: FILGRASTIM
  7. FINASTARIDE [Concomitant]

REACTIONS (2)
  - Respiratory distress [None]
  - Dyspnoea [None]

NARRATIVE: CASE EVENT DATE: 20141102
